FAERS Safety Report 24716957 (Version 1)
Quarter: 2024Q4

REPORT INFORMATION
  Report Type: Report from Study
  Country: US (occurrence: US)
  Receive Date: 20241210
  Receipt Date: 20241210
  Transmission Date: 20250115
  Serious: Yes (Other)
  Sender: ALEXION PHARMACEUTICALS
  Company Number: US-ASTRAZENECA-202412USA001763US

PATIENT

DRUGS (12)
  1. FULVESTRANT [Suspect]
     Active Substance: FULVESTRANT
     Dosage: UNK
     Route: 065
  2. FULVESTRANT [Suspect]
     Active Substance: FULVESTRANT
     Dosage: UNK
     Route: 065
  3. FULVESTRANT [Suspect]
     Active Substance: FULVESTRANT
     Dosage: UNK
     Route: 065
  4. FULVESTRANT [Suspect]
     Active Substance: FULVESTRANT
     Dosage: UNK
     Route: 065
  5. IBRANCE [Suspect]
     Active Substance: PALBOCICLIB
     Indication: Breast cancer female
     Dosage: 100 MILLIGRAM (1 TO 21 OF A 28-DAY CYCLE)
  6. IBRANCE [Suspect]
     Active Substance: PALBOCICLIB
     Dosage: 100 MILLIGRAM (1 TO 21 OF A 28-DAY CYCLE)
     Route: 048
  7. IBRANCE [Suspect]
     Active Substance: PALBOCICLIB
     Dosage: 75 MILLIGRAM (DAYS 1 TO 21 OF A 28 DAY CYCLE)
  8. IBRANCE [Suspect]
     Active Substance: PALBOCICLIB
     Dosage: 75 MILLIGRAM (DAYS 1 TO 21 OF A 28 DAY CYCLE)
     Route: 048
  9. IBRANCE [Suspect]
     Active Substance: PALBOCICLIB
     Dosage: 100 MILLIGRAM (1 TO 21 OF A 28 DAY CYCLE)
  10. IBRANCE [Suspect]
     Active Substance: PALBOCICLIB
     Dosage: 100 MILLIGRAM (1 TO 21 OF A 28 DAY CYCLE)
     Route: 048
  11. VERZENIO [Concomitant]
     Active Substance: ABEMACICLIB
     Dosage: UNK
     Route: 065
  12. VERZENIO [Concomitant]
     Active Substance: ABEMACICLIB
     Dosage: UNK
     Route: 065

REACTIONS (4)
  - Urticaria [Unknown]
  - Hypotension [Unknown]
  - Aphonia [Unknown]
  - Feeling hot [Recovering/Resolving]
